FAERS Safety Report 16822311 (Version 1)
Quarter: 2019Q4

REPORT INFORMATION
  Report Type: Spontaneous
  Country: US (occurrence: US)
  Receive Date: 20190918
  Receipt Date: 20190918
  Transmission Date: 20200122
  Serious: Yes (Disabling)
  Sender: FDA-Public Use
  Company Number: None

PATIENT
  Age: 40 Year
  Sex: Female

DRUGS (2)
  1. PRENATAL [Concomitant]
     Active Substance: VITAMINS
  2. BOTOX [Suspect]
     Active Substance: ONABOTULINUMTOXINA
     Indication: SKIN COSMETIC PROCEDURE
     Dosage: ?          OTHER FREQUENCY:ONE TIME INJECTION;?
     Route: 030
     Dates: start: 20190624

REACTIONS (1)
  - Burning sensation [None]

NARRATIVE: CASE EVENT DATE: 20190708
